FAERS Safety Report 7353774 (Version 5)
Quarter: 2014Q1

REPORT INFORMATION
  Report Type: Spontaneous
  Country: US (occurrence: US)
  Receive Date: 20100413
  Receipt Date: 20140124
  Transmission Date: 20141002
  Serious: Yes (Life-Threatening, Hospitalization, Other)
  Sender: FDA-Public Use
  Company Number: US-BAYER-201019172NA

PATIENT
  Age: 23 Year
  Sex: Female
  Weight: 49.43 kg

DRUGS (5)
  1. YASMIN [Suspect]
     Indication: PREMENSTRUAL SYNDROME
  2. YASMIN [Suspect]
     Indication: CONTRACEPTION
  3. ALBUTEROL [Concomitant]
     Dosage: 2 PUFF(S), Q4HR
     Route: 045
  4. BIOTIN [Concomitant]
     Dosage: UNK UNK, QD
     Route: 048
  5. FAMOTIDINE [Concomitant]

REACTIONS (15)
  - Gallbladder disorder [Unknown]
  - Cholecystitis chronic [None]
  - Biliary dyskinesia [None]
  - Organ failure [None]
  - Fatigue [None]
  - Asthenia [None]
  - Pain [None]
  - Emotional distress [None]
  - Anxiety [None]
  - Pain [None]
  - Anhedonia [None]
  - Injury [None]
  - Injury [None]
  - Emotional distress [None]
  - Pain [None]
